FAERS Safety Report 18393461 (Version 2)
Quarter: 2020Q4

REPORT INFORMATION
  Report Type: Report from Study
  Country: US (occurrence: US)
  Receive Date: 20201016
  Receipt Date: 20201109
  Transmission Date: 20210114
  Serious: No
  Sender: FDA-Public Use
  Company Number: NVSC2020US272487

PATIENT
  Sex: Male

DRUGS (1)
  1. ZOLGENSMA [Suspect]
     Active Substance: ONASEMNOGENE ABEPARVOVEC-XIOI
     Dosage: UNK, ONCE/SINGLE
     Route: 042
     Dates: start: 20201005, end: 20201005

REACTIONS (2)
  - Troponin increased [Unknown]
  - Infantile spitting up [Unknown]
